FAERS Safety Report 5528449-4 (Version None)
Quarter: 2007Q4

REPORT INFORMATION
  Report Type: 
  Country: None (occurrence: None)
  Receive Date: 20071128
  Receipt Date: 20071109
  Transmission Date: 20080405
  Serious: No
  Sender: FDA-Public Use
  Company Number: US-BOEHRINGER INGELHEIM PHARMACEUTICALS, INC.-2007-BP-24367BP

PATIENT

DRUGS (2)
  1. VIRAMUNE [Suspect]
  2. TRUVADA [Concomitant]

REACTIONS (1)
  - RASH [None]
